FAERS Safety Report 4397718-6 (Version None)
Quarter: 2004Q3

REPORT INFORMATION
  Report Type: 
  Country: None (occurrence: None)
  Receive Date: 20040713
  Receipt Date: 20040628
  Transmission Date: 20050211
  Serious: Yes (Death, Hospitalization)
  Sender: FDA-Public Use
  Company Number: 2004-BP-03838BP

PATIENT
  Age: 85 Year
  Sex: Male
  Weight: 50.8 kg

DRUGS (7)
  1. SPIRIVA [Suspect]
     Indication: CHRONIC OBSTRUCTIVE AIRWAYS DISEASE
     Dosage: 18 MCG (18 MCG, 18 MCG DAILY), IH
     Route: 055
  2. THEOPHYLLINE [Concomitant]
  3. COMBIVENT [Concomitant]
  4. PREDNISONE TAB [Concomitant]
  5. FORADIL (FIORMOTEROL FUMARATE) [Concomitant]
  6. FLOVENT [Concomitant]
  7. OXYGEN (OXYGEN) [Concomitant]

REACTIONS (1)
  - CHRONIC OBSTRUCTIVE AIRWAYS DISEASE EXACERBATED [None]
